FAERS Safety Report 18469208 (Version 2)
Quarter: 2020Q4

REPORT INFORMATION
  Report Type: Report from Study
  Country: KR (occurrence: KR)
  Receive Date: 20201105
  Receipt Date: 20201127
  Transmission Date: 20210114
  Serious: Yes (Hospitalization)
  Sender: FDA-Public Use
  Company Number: KR-JNJFOC-20201044840

PATIENT
  Age: 72 Year
  Sex: Male

DRUGS (10)
  1. NOMA S [Concomitant]
     Indication: HYPERTENSION
     Route: 048
  2. PRADAXA [Concomitant]
     Active Substance: DABIGATRAN ETEXILATE MESYLATE
     Indication: ATRIAL FIBRILLATION
     Route: 048
  3. DIGOSIN [Concomitant]
     Active Substance: DIGOXIN
     Indication: ATRIAL FIBRILLATION
     Route: 048
  4. ELROTON [Concomitant]
     Indication: ATRIAL FIBRILLATION
     Route: 048
  5. ABIRATERONE ACETATE. [Suspect]
     Active Substance: ABIRATERONE ACETATE
     Indication: PROSTATE CANCER
     Route: 048
     Dates: start: 20191220, end: 20200103
  6. TAMBOCOR [Concomitant]
     Active Substance: FLECAINIDE ACETATE
     Indication: ATRIAL FIBRILLATION
     Route: 048
  7. HERBEN [Concomitant]
     Active Substance: DILTIAZEM HYDROCHLORIDE
     Indication: HYPERTENSION
     Route: 048
  8. ISOBID                             /07346401/ [Concomitant]
     Indication: ATRIAL FIBRILLATION
     Route: 048
  9. CIRCUROXIN [Concomitant]
     Indication: ATRIAL FIBRILLATION
     Route: 048
  10. S AMLODIPINE NICOTINATE [Concomitant]
     Indication: HYPERTENSION
     Route: 048

REACTIONS (1)
  - Cardiac disorder [Recovered/Resolved]

NARRATIVE: CASE EVENT DATE: 20191225
